FAERS Safety Report 7600297-0 (Version None)
Quarter: 2011Q2

REPORT INFORMATION
  Report Type: 
  Country: None (occurrence: None)
  Receive Date: 20110629
  Receipt Date: 20110616
  Transmission Date: 20111010
  Serious: Yes (Other)
  Sender: FDA-Public Use
  Company Number: JP-2011-10874

PATIENT
  Age: 57 Year
  Sex: Female

DRUGS (2)
  1. PLETAL [Suspect]
     Indication: CEREBRAL INFARCTION
     Dosage: ORAL
     Route: 048
  2. BUFFERIN [Concomitant]

REACTIONS (1)
  - VITREOUS HAEMORRHAGE [None]
